FAERS Safety Report 9108444 (Version 1)
Quarter: 2013Q1

REPORT INFORMATION
  Report Type: Spontaneous
  Country: US (occurrence: US)
  Receive Date: 20130222
  Receipt Date: 20130222
  Transmission Date: 20140127
  Serious: No
  Sender: FDA-Public Use
  Company Number: US-009507513-1302USA009476

PATIENT
  Sex: Female

DRUGS (1)
  1. IMPLANON [Suspect]
     Dosage: 68 MILLIGRAMS ONE ROD EVERY 3 YEARS
     Route: 059

REACTIONS (4)
  - Unintended pregnancy [Unknown]
  - Device expulsion [Unknown]
  - No adverse event [Unknown]
  - Medical device complication [Unknown]
